FAERS Safety Report 5282001-7 (Version None)
Quarter: 2007Q1

REPORT INFORMATION
  Report Type: 
  Country: None (occurrence: None)
  Receive Date: 20070330
  Receipt Date: 20070323
  Transmission Date: 20070707
  Serious: Yes (Hospitalization)
  Sender: FDA-Public Use
  Company Number: FR-ELI_LILLY_AND_COMPANY-FR200703004798

PATIENT
  Age: 59 Year
  Sex: Male
  Weight: 54 kg

DRUGS (10)
  1. GEMZAR [Suspect]
     Indication: LUNG NEOPLASM MALIGNANT
     Dosage: UNK, UNKNOWN
     Route: 042
     Dates: start: 20061227, end: 20061227
  2. ALIMTA [Suspect]
     Indication: LUNG NEOPLASM MALIGNANT
     Dosage: UNK, UNKNOWN
     Route: 042
     Dates: start: 20061227, end: 20061227
  3. ZOMETA [Concomitant]
     Dosage: UNK, UNKNOWN
     Route: 042
     Dates: start: 20061227, end: 20061227
  4. SOLUPRED [Concomitant]
     Dosage: UNK, UNKNOWN
     Route: 048
     Dates: start: 20061227
  5. SKENAN [Concomitant]
     Indication: PAIN
     Dosage: UNK, UNKNOWN
     Route: 048
     Dates: start: 20061227
  6. LYRICA [Concomitant]
     Dosage: UNK, UNKNOWN
     Route: 048
     Dates: start: 20061211
  7. ACTISKENAN [Concomitant]
     Indication: PAIN
     Dosage: UNK, UNKNOWN
     Route: 065
     Dates: start: 20061227
  8. FORLAX [Concomitant]
     Dosage: UNK, UNKNOWN
     Route: 065
     Dates: start: 20061227
  9. NEXIUM [Concomitant]
     Dosage: UNK, UNKNOWN
     Route: 065
     Dates: start: 20060601
  10. STABLON [Concomitant]
     Dosage: UNK, UNKNOWN
     Route: 065
     Dates: start: 20060601

REACTIONS (2)
  - ANALGESIC DRUG LEVEL INCREASED [None]
  - RENAL FAILURE ACUTE [None]
